FAERS Safety Report 10344362 (Version 1)
Quarter: 2014Q3

REPORT INFORMATION
  Report Type: Spontaneous
  Country: US (occurrence: US)
  Receive Date: 20140728
  Receipt Date: 20140728
  Transmission Date: 20150326
  Serious: No
  Sender: FDA-Public Use
  Company Number: US-BIOGENIDEC-2014BI071086

PATIENT
  Age: 70 Year
  Sex: Female

DRUGS (23)
  1. CHLORTHALIDOONE [Concomitant]
  2. PREMARIN [Concomitant]
     Active Substance: ESTROGENS, CONJUGATED
  3. EVISTA [Concomitant]
     Active Substance: RALOXIFENE HYDROCHLORIDE
  4. MAGNESIUM [Concomitant]
     Active Substance: MAGNESIUM
  5. NEXIUM [Concomitant]
     Active Substance: ESOMEPRAZOLE MAGNESIUM
  6. VITAMIN C ER [Concomitant]
  7. CALCIUM/MAGNESIUM/ZINC [Concomitant]
  8. LEXAPRO [Concomitant]
     Active Substance: ESCITALOPRAM OXALATE
  9. LOVAZA [Concomitant]
     Active Substance: OMEGA-3-ACID ETHYL ESTERS
  10. SYNTHROID [Concomitant]
     Active Substance: LEVOTHYROXINE SODIUM
  11. FLONASE [Concomitant]
     Active Substance: FLUTICASONE PROPIONATE
  12. SPIRONOLACTONE. [Concomitant]
     Active Substance: SPIRONOLACTONE
  13. TECFIDERA [Suspect]
     Active Substance: DIMETHYL FUMARATE
     Indication: MULTIPLE SCLEROSIS
     Route: 048
  14. ALIGN [Concomitant]
     Active Substance: BIFIDOBACTERIUM LONGUM SUBSP. INFANTIS
  15. AMLODIPINE BESYLATE. [Concomitant]
     Active Substance: AMLODIPINE BESYLATE
  16. MIRALAX [Concomitant]
     Active Substance: POLYETHYLENE GLYCOL 3350
  17. BENICAR [Concomitant]
     Active Substance: OLMESARTAN MEDOXOMIL
  18. QVAR [Concomitant]
     Active Substance: BECLOMETHASONE DIPROPIONATE
  19. VITAMIN B COMPLEX [Concomitant]
     Active Substance: CYANOCOBALAMIN\DEXPANTHENOL\NIACINAMIDE\PYRIDOXINE HYDROCHLORIDE\RIBOFLAVIN 5^-PHOSPHATE SODIUM\THIAMINE HYDROCHLORIDE\VITAMIN B COMPLEX
  20. ASPIR LOW [Concomitant]
     Active Substance: ASPIRIN
  21. FOLIC ACID. [Concomitant]
     Active Substance: FOLIC ACID
  22. SINGULAIR [Concomitant]
     Active Substance: MONTELUKAST SODIUM
  23. TYLENOL ARTHRITIS PAIN [Concomitant]
     Active Substance: ACETAMINOPHEN

REACTIONS (1)
  - Red blood cell count decreased [Unknown]
